FAERS Safety Report 12315108 (Version 2)
Quarter: 2016Q2

REPORT INFORMATION
  Report Type: Spontaneous
  Country: JP (occurrence: JP)
  Receive Date: 20160428
  Receipt Date: 20160527
  Transmission Date: 20160815
  Serious: Yes (Hospitalization)
  Sender: FDA-Public Use
  Company Number: JP-ABBVIE-16P-087-1616257-00

PATIENT
  Age: 83 Year
  Sex: Male
  Weight: 66.1 kg

DRUGS (2)
  1. LEUPLIN [Suspect]
     Active Substance: LEUPROLIDE ACETATE
     Indication: PROSTATE CANCER
     Dosage: 3.75 MG, Q4WEEKS
     Route: 058
     Dates: start: 20160317
  2. CASODEX [Concomitant]
     Active Substance: BICALUTAMIDE
     Indication: PROSTATE CANCER
     Dosage: 80 MG, QD
     Route: 048
     Dates: start: 20160218

REACTIONS (5)
  - Hyperkalaemia [Recovered/Resolved]
  - Blood sodium decreased [Not Recovered/Not Resolved]
  - Blood urea increased [Recovering/Resolving]
  - Blood creatinine increased [Recovering/Resolving]
  - Blood chloride increased [Recovered/Resolved]

NARRATIVE: CASE EVENT DATE: 20160404
